FAERS Safety Report 10219653 (Version 2)
Quarter: 2014Q2

REPORT INFORMATION
  Report Type: Spontaneous
  Country: US (occurrence: None)
  Receive Date: 20140603
  Receipt Date: 20140611
  Transmission Date: 20141212
  Serious: Yes (Hospitalization)
  Sender: FDA-Public Use
  Company Number: AMAG201400161

PATIENT
  Age: 66 Year
  Sex: Female
  Weight: 72 kg

DRUGS (15)
  1. FERAHEME [Suspect]
     Indication: IRON DEFICIENCY ANAEMIA
     Dosage: 510 MG, SINGLE, IV PUSH
     Route: 042
     Dates: start: 20140520, end: 20140520
  2. FERAHEME [Suspect]
     Indication: RENAL FAILURE CHRONIC
     Dosage: 510 MG, SINGLE, IV PUSH
     Route: 042
     Dates: start: 20140520, end: 20140520
  3. ATORVASTATIN (ATORVASTATIN CALCIUM) [Concomitant]
  4. CARVEDILOL (CARVEDILOL) [Concomitant]
  5. FERROUS SULFATE (FERROUS SULFATE) [Concomitant]
  6. FOLIC ACID (FOLIC ACID) [Concomitant]
  7. HYDRALAZINE (HYDRALAZINE HYDROCHLORIDE) [Concomitant]
  8. LASIX (FUROSEMIDE) [Concomitant]
  9. LEVOTHYROXINE (LEVOTHYROXINE SODIUM) [Concomitant]
  10. LORATADINE (LORATADINE) (LORATADINE) [Concomitant]
  11. NORVASC (AMLODIPINE BESILATE) [Concomitant]
  12. OMEPRAZOLE (OMEPRAZOLE) [Concomitant]
  13. PHOSLO (CALCIUM ACETATE) [Concomitant]
  14. LINAGLIPTIN (LINAGLIPTIN) [Concomitant]
  15. VITAMIN D2 (VITAMIN D2) [Concomitant]

REACTIONS (6)
  - Anaphylactic reaction [None]
  - Cardiac arrest [None]
  - Brain injury [None]
  - Pericardial effusion [None]
  - Anaphylactic shock [None]
  - Brain injury [None]
